FAERS Safety Report 5196773-3 (Version None)
Quarter: 2006Q4

REPORT INFORMATION
  Report Type: 
  Country: None (occurrence: None)
  Receive Date: 20061229
  Receipt Date: 20061229
  Transmission Date: 20070319
  Serious: Yes (Life-Threatening)
  Sender: FDA-Public Use
  Company Number: None

PATIENT
  Age: 42 Year
  Sex: Female
  Weight: 79.3795 kg

DRUGS (1)
  1. FEMHRT [Suspect]
     Indication: HORMONE REPLACEMENT THERAPY
     Dosage: 1 PILL DAILY
     Dates: start: 20040708, end: 20061017

REACTIONS (1)
  - BREAST CANCER FEMALE [None]
